FAERS Safety Report 8054803-5 (Version None)
Quarter: 2012Q1

REPORT INFORMATION
  Report Type: 
  Country: None (occurrence: None)
  Receive Date: 20120119
  Receipt Date: 20120113
  Transmission Date: 20120608
  Serious: Yes (Other)
  Sender: FDA-Public Use
  Company Number: US-BAYER-2011-031832

PATIENT
  Age: 27 Year
  Sex: Female
  Weight: 54.422 kg

DRUGS (1)
  1. YASMIN [Suspect]
     Indication: PRODUCT USED FOR UNKNOWN INDICATION
     Dosage: UNK
     Dates: start: 20020101, end: 20050801

REACTIONS (4)
  - TRANSIENT ISCHAEMIC ATTACK [None]
  - HYPOAESTHESIA [None]
  - GAIT DISTURBANCE [None]
  - SPEECH DISORDER [None]
